FAERS Safety Report 24449811 (Version 1)
Quarter: 2024Q4

REPORT INFORMATION
  Report Type: Spontaneous
  Country: US (occurrence: None)
  Receive Date: 20241016
  Receipt Date: 20241016
  Transmission Date: 20250115
  Serious: Yes (Life-Threatening, Hospitalization)
  Sender: Public
  Company Number: None

PATIENT
  Age: 75 Year
  Sex: Male

DRUGS (1)
  1. EMPAGLIFLOZIN [Suspect]
     Active Substance: EMPAGLIFLOZIN
     Indication: Cardiac failure congestive
     Route: 048

REACTIONS (8)
  - Hypotension [None]
  - Pyelonephritis [None]
  - Septic shock [None]
  - Respiratory failure [None]
  - Hypoxia [None]
  - Acute kidney injury [None]
  - Leukocytosis [None]
  - Lactic acidosis [None]

NARRATIVE: CASE EVENT DATE: 20240509
